FAERS Safety Report 25302938 (Version 1)
Quarter: 2025Q2

REPORT INFORMATION
  Report Type: Spontaneous
  Country: FR (occurrence: FR)
  Receive Date: 20250512
  Receipt Date: 20250512
  Transmission Date: 20250716
  Serious: Yes (Hospitalization)
  Sender: PRINSTON PHARMACEUTICAL
  Company Number: FR-PRINSTON PHARMACEUTICAL INC.-2025PRN00162

PATIENT
  Age: 76 Year
  Sex: Male

DRUGS (3)
  1. CANDESARTAN [Suspect]
     Active Substance: CANDESARTAN
  2. CELIPROLOL [Suspect]
     Active Substance: CELIPROLOL
  3. AMLODIPINE [Suspect]
     Active Substance: AMLODIPINE BESYLATE

REACTIONS (4)
  - Suicide attempt [Unknown]
  - Hypotension [Unknown]
  - Bradycardia [Unknown]
  - Toxicity to various agents [Unknown]
